FAERS Safety Report 7955088-8 (Version None)
Quarter: 2011Q4

REPORT INFORMATION
  Report Type: 
  Country: None (occurrence: None)
  Receive Date: 20111202
  Receipt Date: 20111130
  Transmission Date: 20120403
  Serious: No
  Sender: FDA-Public Use
  Company Number: US-BAYER-2011-115385

PATIENT
  Age: 35 Year
  Sex: Female
  Weight: 54.422 kg

DRUGS (1)
  1. MAGNEVIST [Suspect]
     Indication: NUCLEAR MAGNETIC RESONANCE IMAGING
     Dosage: 10 ML, ONCE
     Route: 042
     Dates: start: 20111130, end: 20111130

REACTIONS (3)
  - VOMITING [None]
  - HEADACHE [None]
  - NAUSEA [None]
